FAERS Safety Report 14894202 (Version 5)
Quarter: 2019Q2

REPORT INFORMATION
  Report Type: Report from Study
  Country: None (occurrence: FR)
  Receive Date: 20180515
  Receipt Date: 20190603
  Transmission Date: 20190711
  Serious: Yes (Hospitalization, Congenital Anomaly, Other)
  Sender: FDA-Public Use
  Company Number: FR-ABBVIE-18K-056-2354770-00

PATIENT
  Sex: Male

DRUGS (2)
  1. DUODOPA [Suspect]
     Active Substance: CARBIDOPA\LEVODOPA
     Route: 050
     Dates: start: 20180416
  2. DUODOPA [Suspect]
     Active Substance: CARBIDOPA\LEVODOPA
     Indication: PARKINSON^S DISEASE
     Route: 050
     Dates: start: 20180401, end: 2018

REACTIONS (9)
  - Myocardial necrosis [Unknown]
  - Cardio-respiratory arrest [Not Recovered/Not Resolved]
  - Asthenia [Unknown]
  - Wheelchair user [Unknown]
  - Medical device site necrosis [Unknown]
  - Dyskinesia [Not Recovered/Not Resolved]
  - Cardio-respiratory arrest [Unknown]
  - Surgery [Unknown]
  - Atrioventricular block [Not Recovered/Not Resolved]

NARRATIVE: CASE EVENT DATE: 2018
